FAERS Safety Report 10936966 (Version 2)
Quarter: 2015Q2

REPORT INFORMATION
  Report Type: Spontaneous
  Country: US (occurrence: US)
  Receive Date: 20150321
  Receipt Date: 20150525
  Transmission Date: 20150821
  Serious: No
  Sender: FDA-Public Use
  Company Number: US-JNJFOC-20130214734

PATIENT
  Age: 30 Year
  Sex: Female
  Weight: 81.65 kg

DRUGS (4)
  1. TOPAMAX [Suspect]
     Active Substance: TOPIRAMATE
     Indication: PARAESTHESIA
     Route: 048
     Dates: start: 2013, end: 20130219
  2. TOPAMAX [Suspect]
     Active Substance: TOPIRAMATE
     Indication: PARAESTHESIA
     Route: 048
     Dates: start: 20130219, end: 20130221
  3. TOPAMAX [Suspect]
     Active Substance: TOPIRAMATE
     Indication: HEADACHE
     Route: 048
     Dates: start: 2013, end: 20130219
  4. TOPAMAX [Suspect]
     Active Substance: TOPIRAMATE
     Indication: HEADACHE
     Route: 048
     Dates: start: 20130219, end: 20130221

REACTIONS (1)
  - Visual impairment [Not Recovered/Not Resolved]

NARRATIVE: CASE EVENT DATE: 20130221
